FAERS Safety Report 20944854 (Version 2)
Quarter: 2022Q3

REPORT INFORMATION
  Report Type: Spontaneous
  Country: PT (occurrence: PT)
  Receive Date: 20220610
  Receipt Date: 20220718
  Transmission Date: 20221027
  Serious: Yes (Other)
  Sender: FDA-Public Use
  Company Number: None

PATIENT
  Age: 73 Year
  Sex: Female

DRUGS (1)
  1. ETANERCEPT [Suspect]
     Active Substance: ETANERCEPT
     Indication: Rheumatoid arthritis
     Dosage: SOLUTION INJECTABLE
     Route: 058
     Dates: start: 20210325, end: 20220408

REACTIONS (1)
  - Necrotising scleritis [Recovered/Resolved]

NARRATIVE: CASE EVENT DATE: 20220408
